FAERS Safety Report 7252387-2 (Version None)
Quarter: 2011Q1

REPORT INFORMATION
  Report Type: 
  Country: None (occurrence: None)
  Receive Date: 20110129
  Receipt Date: 20100427
  Transmission Date: 20110831
  Serious: No
  Sender: FDA-Public Use
  Company Number: US-ABBOTT-09P-163-0564880-00

PATIENT
  Sex: Female
  Weight: 43.584 kg

DRUGS (4)
  1. CIMZIA [Suspect]
     Indication: PRODUCT USED FOR UNKNOWN INDICATION
  2. HUMIRA [Suspect]
     Dates: start: 20090608, end: 20100308
  3. HUMIRA [Suspect]
     Indication: CROHN'S DISEASE
     Route: 058
     Dates: start: 20080707, end: 20090301
  4. REMICADE [Suspect]
     Indication: CROHN'S DISEASE

REACTIONS (2)
  - INJECTION SITE PAIN [None]
  - CROHN'S DISEASE [None]
